FAERS Safety Report 7540543-5 (Version None)
Quarter: 2011Q2

REPORT INFORMATION
  Report Type: 
  Country: None (occurrence: None)
  Receive Date: 20110610
  Receipt Date: 20110603
  Transmission Date: 20111010
  Serious: Yes (Disabling, Other)
  Sender: FDA-Public Use
  Company Number: B0712651A

PATIENT
  Sex: Male
  Weight: 102 kg

DRUGS (2)
  1. BISOPROLOL FUMARATE [Concomitant]
     Dosage: 1.25MG TWICE PER DAY
     Route: 048
     Dates: start: 20110117
  2. PROPAFENONE HCL [Suspect]
     Dosage: 150MG THREE TIMES PER DAY
     Route: 048
     Dates: start: 20100721

REACTIONS (9)
  - SWELLING [None]
  - MYALGIA [None]
  - OEDEMA PERIPHERAL [None]
  - DYSPHAGIA [None]
  - SYSTEMIC LUPUS ERYTHEMATOSUS [None]
  - OROPHARYNGEAL DISCOMFORT [None]
  - DYSPNOEA [None]
  - SYNOVITIS [None]
  - PAIN [None]
